FAERS Safety Report 17012559 (Version 2)
Quarter: 2021Q4

REPORT INFORMATION
  Report Type: Spontaneous
  Country: CA (occurrence: CA)
  Receive Date: 20191109
  Receipt Date: 20211028
  Transmission Date: 20220303
  Serious: Yes (Other)
  Sender: FDA-Public Use
  Company Number: CA-ROCHE-2458338

PATIENT
  Age: 64 Year
  Sex: Female

DRUGS (17)
  1. ACTEMRA [Suspect]
     Active Substance: TOCILIZUMAB
     Indication: Rheumatoid arthritis
     Route: 065
  2. ACTONEL [Suspect]
     Active Substance: RISEDRONATE SODIUM
     Indication: Rheumatoid arthritis
     Route: 065
  3. LEFLUNOMIDE [Suspect]
     Active Substance: LEFLUNOMIDE
     Indication: Rheumatoid arthritis
     Route: 048
  4. ARAVA [Suspect]
     Active Substance: LEFLUNOMIDE
     Indication: Rheumatoid arthritis
     Route: 065
  5. CELEBREX [Suspect]
     Active Substance: CELECOXIB
     Indication: Rheumatoid arthritis
     Route: 065
  6. CELEBREX [Suspect]
     Active Substance: CELECOXIB
     Indication: Arthritis
     Route: 048
  7. CIMZIA [Suspect]
     Active Substance: CERTOLIZUMAB PEGOL
     Indication: Rheumatoid arthritis
     Dosage: SOLUTION SUBCUTANEOUS
     Route: 058
  8. ENBREL [Suspect]
     Active Substance: ETANERCEPT
     Indication: Rheumatoid arthritis
     Route: 058
  9. METHOTREXATE [Suspect]
     Active Substance: METHOTREXATE
     Indication: Rheumatoid arthritis
     Route: 058
  10. ORENCIA [Suspect]
     Active Substance: ABATACEPT
     Indication: Rheumatoid arthritis
     Route: 065
  11. PREDNISOLONE [Suspect]
     Active Substance: PREDNISOLONE
     Indication: Rheumatoid arthritis
     Route: 065
  12. PREDNISONE [Suspect]
     Active Substance: PREDNISONE
     Indication: Rheumatoid arthritis
     Route: 065
  13. PROLIA [Suspect]
     Active Substance: DENOSUMAB
     Indication: Rheumatoid arthritis
     Dosage: SOLUTION SUBCUTANEOUS
     Route: 058
  14. SIMPONI [Suspect]
     Active Substance: GOLIMUMAB
     Indication: Rheumatoid arthritis
     Dosage: SOLUTION SUBCUTANEOUS
     Route: 058
  15. SULFASALAZINE [Suspect]
     Active Substance: SULFASALAZINE
     Indication: Rheumatoid arthritis
     Route: 048
  16. RISEDRONATE SODIUM [Suspect]
     Active Substance: RISEDRONATE SODIUM
     Indication: Rheumatoid arthritis
     Route: 065
  17. XELJANZ [Concomitant]
     Active Substance: TOFACITINIB CITRATE
     Indication: Rheumatoid arthritis
     Route: 048

REACTIONS (15)
  - Arthralgia [Unknown]
  - Bedridden [Unknown]
  - Condition aggravated [Unknown]
  - Contraindicated product administered [Unknown]
  - Drug ineffective [Unknown]
  - Foot fracture [Unknown]
  - Fracture [Unknown]
  - General physical health deterioration [Unknown]
  - Immobile [Unknown]
  - Loss of personal independence in daily activities [Unknown]
  - Lower limb fracture [Unknown]
  - Mobility decreased [Unknown]
  - Osteoporosis [Unknown]
  - Rheumatoid arthritis [Unknown]
  - Therapeutic product effect incomplete [Unknown]
